FAERS Safety Report 25163666 (Version 1)
Quarter: 2025Q2

REPORT INFORMATION
  Report Type: Report from Study
  Country: US (occurrence: US)
  Receive Date: 20250405
  Receipt Date: 20250405
  Transmission Date: 20250716
  Serious: Yes (Other)
  Sender: ABBVIE
  Company Number: US-ABBVIE-6207897

PATIENT
  Sex: Male

DRUGS (1)
  1. SKYRIZI [Suspect]
     Active Substance: RISANKIZUMAB-RZAA
     Indication: Crohn^s disease
     Route: 058
     Dates: start: 20240619

REACTIONS (4)
  - Large intestine infection [Recovering/Resolving]
  - Post procedural haemorrhage [Unknown]
  - Nausea [Recovering/Resolving]
  - Fatigue [Recovering/Resolving]
